FAERS Safety Report 7718771-5 (Version None)
Quarter: 2011Q3

REPORT INFORMATION
  Report Type: 
  Country: None (occurrence: None)
  Receive Date: 20110830
  Receipt Date: 20110822
  Transmission Date: 20111222
  Serious: Yes (Other)
  Sender: FDA-Public Use
  Company Number: US-PFIZER INC-2011194800

PATIENT
  Sex: Female

DRUGS (2)
  1. EFFEXOR [Suspect]
  2. EFFEXOR XR [Suspect]
     Dosage: 75 MG

REACTIONS (13)
  - SUICIDAL IDEATION [None]
  - AGGRESSION [None]
  - DEPRESSION [None]
  - NAUSEA [None]
  - NERVOUSNESS [None]
  - DRUG INEFFECTIVE [None]
  - SUICIDE ATTEMPT [None]
  - THINKING ABNORMAL [None]
  - WITHDRAWAL SYNDROME [None]
  - CHILD NEGLECT [None]
  - PANIC ATTACK [None]
  - EMOTIONAL DISORDER [None]
  - ABNORMAL BEHAVIOUR [None]
